FAERS Safety Report 5857459-2 (Version None)
Quarter: 2008Q3

REPORT INFORMATION
  Report Type: 
  Country: None (occurrence: None)
  Receive Date: 20080826
  Receipt Date: 20080818
  Transmission Date: 20090109
  Serious: Yes (Hospitalization, Other)
  Sender: FDA-Public Use
  Company Number: US-NOVOPROD-278509

PATIENT
  Age: 65 Year
  Sex: Female

DRUGS (2)
  1. VAGIFEM [Suspect]
     Indication: ATROPHIC VULVOVAGINITIS
     Route: 067
     Dates: start: 20030101, end: 20080501
  2. VAGIFEM [Suspect]
     Indication: VULVOVAGINAL DRYNESS

REACTIONS (1)
  - BREAST CANCER [None]
